FAERS Safety Report 4999623-0 (Version None)
Quarter: 2006Q2

REPORT INFORMATION
  Report Type: 
  Country: None (occurrence: None)
  Receive Date: 20060511
  Receipt Date: 20060502
  Transmission Date: 20061013
  Serious: Yes (Other)
  Sender: FDA-Public Use
  Company Number: US-JNJFOC-20060306662

PATIENT
  Sex: Male

DRUGS (3)
  1. REMICADE [Suspect]
     Indication: CROHN'S DISEASE
     Route: 042
  2. 6-MP [Concomitant]
     Indication: CROHN'S DISEASE
  3. ATENOLOL [Concomitant]
     Indication: CROHN'S DISEASE

REACTIONS (1)
  - CUTANEOUS LUPUS ERYTHEMATOSUS [None]
